FAERS Safety Report 20484039 (Version 2)
Quarter: 2022Q1

REPORT INFORMATION
  Report Type: Spontaneous
  Country: JP (occurrence: JP)
  Receive Date: 20220217
  Receipt Date: 20220303
  Transmission Date: 20220423
  Serious: Yes (Death, Other)
  Sender: FDA-Public Use
  Company Number: JP-ASTELLAS-2022US005993

PATIENT
  Age: 24 Year
  Sex: Male

DRUGS (5)
  1. AMBISOME [Suspect]
     Active Substance: AMPHOTERICIN B
     Indication: Bronchopulmonary aspergillosis
     Dosage: 3 MG/KG, ONCE DAILY (STARTED ON DAY18)
     Route: 041
  2. AMBISOME [Suspect]
     Active Substance: AMPHOTERICIN B
     Dosage: 5 MG/KG, ONCE DAILY (STARTED ON DAY 51)
     Route: 041
  3. AMBISOME [Suspect]
     Active Substance: AMPHOTERICIN B
     Dosage: 10 MG/KG, ONCE DAILY (STARTED ON DAY 91)
     Route: 041
  4. VORICONAZOLE [Concomitant]
     Active Substance: VORICONAZOLE
     Indication: Infection prophylaxis
     Route: 065
  5. MICAFUNGIN [Concomitant]
     Active Substance: MICAFUNGIN
     Indication: Product used for unknown indication
     Dosage: UNK UNK, UNKNOWN FREQ.
     Route: 065

REACTIONS (2)
  - Bronchopulmonary aspergillosis [Fatal]
  - Condition aggravated [Fatal]
